FAERS Safety Report 21289976 (Version 3)
Quarter: 2023Q4

REPORT INFORMATION
  Report Type: Spontaneous
  Country: US (occurrence: US)
  Receive Date: 20220902
  Receipt Date: 20231128
  Transmission Date: 20240110
  Serious: Yes (Other)
  Sender: FDA-Public Use
  Company Number: US-PFIZER INC-PV202200054491

PATIENT
  Age: 68 Year
  Sex: Female
  Weight: 72.57 kg

DRUGS (2)
  1. XELJANZ [Suspect]
     Active Substance: TOFACITINIB CITRATE
     Indication: Granuloma annulare
     Dosage: 5 MG, 2X/DAY
  2. XELJANZ [Suspect]
     Active Substance: TOFACITINIB CITRATE
     Indication: Breast cancer
     Dosage: 5 MG, 1X/DAY

REACTIONS (5)
  - Breast cancer [Unknown]
  - Off label use [Unknown]
  - Product prescribing error [Unknown]
  - Weight increased [Unknown]
  - Brain fog [Unknown]

NARRATIVE: CASE EVENT DATE: 20211101
